FAERS Safety Report 12010746 (Version 1)
Quarter: 2016Q1

REPORT INFORMATION
  Report Type: Spontaneous
  Country: CZ (occurrence: CZ)
  Receive Date: 20160205
  Receipt Date: 20160205
  Transmission Date: 20160526
  Serious: Yes (Other)
  Sender: FDA-Public Use
  Company Number: CZ-TEVA-630273ISR

PATIENT
  Sex: Male

DRUGS (2)
  1. BICALUTAMIDE. [Suspect]
     Active Substance: BICALUTAMIDE
     Dates: start: 2011
  2. BETAXOLOL. [Concomitant]
     Active Substance: BETAXOLOL
     Indication: HYPERTENSION
     Route: 048

REACTIONS (1)
  - Metastatic neoplasm [Unknown]
